FAERS Safety Report 10241369 (Version 1)
Quarter: 2014Q2

REPORT INFORMATION
  Report Type: Spontaneous
  Country: BR (occurrence: BR)
  Receive Date: 20140617
  Receipt Date: 20140617
  Transmission Date: 20141212
  Serious: Yes (Other)
  Sender: FDA-Public Use
  Company Number: BR-WATSON-2014-12485

PATIENT
  Age: 57 Year
  Sex: Male

DRUGS (1)
  1. CLOMIPRAMINE (UNKNOWN) [Suspect]
     Indication: PANIC DISORDER
     Dosage: 25 MG, DAILY
     Route: 065

REACTIONS (1)
  - Aquagenic pruritus [Recovered/Resolved]
